FAERS Safety Report 21199750 (Version 1)
Quarter: 2022Q3

REPORT INFORMATION
  Report Type: Spontaneous
  Country: US (occurrence: US)
  Receive Date: 20220811
  Receipt Date: 20220811
  Transmission Date: 20221026
  Serious: Yes (Other)
  Sender: FDA-Public Use
  Company Number: US-BAXTER-2022BAX016936

PATIENT
  Age: 23 Year
  Sex: Female

DRUGS (22)
  1. CYCLOPHOSPHAMIDE [Suspect]
     Active Substance: CYCLOPHOSPHAMIDE
     Indication: Plasmablastic lymphoma
     Dosage: 2 CYCLES, DOSE-ADJUSTED V-EPOCH
     Route: 065
  2. DOXORUBICIN [Suspect]
     Active Substance: DOXORUBICIN
     Indication: Plasmablastic lymphoma
     Dosage: 2 CYCLES, DOSE-ADJUSTED V-EPOCH
     Route: 065
  3. IFOSFAMIDE [Suspect]
     Active Substance: IFOSFAMIDE
     Indication: Plasmablastic lymphoma
     Dosage: ICE
     Route: 065
  4. IFOSFAMIDE [Suspect]
     Active Substance: IFOSFAMIDE
     Indication: Disease progression
  5. ETOPOSIDE [Suspect]
     Active Substance: ETOPOSIDE
     Indication: Plasmablastic lymphoma
     Dosage: 2 CYCLES, DOSE-ADJUSTED V-EPOCH
     Route: 065
  6. ETOPOSIDE [Suspect]
     Active Substance: ETOPOSIDE
     Indication: Disease progression
     Dosage: ICE
     Route: 065
  7. PREDNISONE [Suspect]
     Active Substance: PREDNISONE
     Indication: Plasmablastic lymphoma
     Dosage: 2 CYCLES, DOSE-ADJUSTED V-EPOCH
     Route: 065
  8. VINCRISTINE [Suspect]
     Active Substance: VINCRISTINE
     Indication: Plasmablastic lymphoma
     Dosage: 2 CYCLES, DOSE-ADJUSTED V-EPOCH
     Route: 065
  9. BORTEZOMIB [Suspect]
     Active Substance: BORTEZOMIB
     Indication: Plasmablastic lymphoma
     Dosage: 2 CYCLES, DOSE-ADJUSTED V-EPOCH
     Route: 065
  10. SIROLIMUS [Concomitant]
     Active Substance: SIROLIMUS
     Indication: Gorham^s disease
     Dosage: FOR NEARLY 3 YEARS
     Route: 065
  11. OCTREOTIDE [Concomitant]
     Active Substance: OCTREOTIDE
     Indication: Gorham^s disease
     Dosage: FOR NEARLY 3 YEARS
     Route: 065
  12. LENALIDOMIDE [Concomitant]
     Active Substance: LENALIDOMIDE
     Indication: Plasmablastic lymphoma
     Dosage: DRD, 8 CYCLES
     Route: 065
  13. LENALIDOMIDE [Concomitant]
     Active Substance: LENALIDOMIDE
     Indication: Disease progression
  14. DEXAMETHASONE [Concomitant]
     Active Substance: DEXAMETHASONE
     Indication: Plasmablastic lymphoma
     Dosage: DRD, 8 CYCLES
     Route: 065
  15. DEXAMETHASONE [Concomitant]
     Active Substance: DEXAMETHASONE
     Indication: Disease progression
  16. DARATUMUMAB [Concomitant]
     Active Substance: DARATUMUMAB
     Indication: Plasmablastic lymphoma
     Dosage: DRD, 8 CYCLES
     Route: 065
  17. DARATUMUMAB [Concomitant]
     Active Substance: DARATUMUMAB
     Indication: Disease progression
  18. CARFILZOMIB [Concomitant]
     Active Substance: CARFILZOMIB
     Indication: Plasmablastic lymphoma
     Dosage: ONE CYCLE
     Route: 065
  19. CARFILZOMIB [Concomitant]
     Active Substance: CARFILZOMIB
     Indication: Disease progression
  20. CARBOPLATIN [Concomitant]
     Active Substance: CARBOPLATIN
     Indication: Plasmablastic lymphoma
     Dosage: ICE
     Route: 065
  21. CARBOPLATIN [Concomitant]
     Active Substance: CARBOPLATIN
     Indication: Disease progression
  22. GRANULOCYTE COLONY-STIMULATING FACTOR NOS [Concomitant]
     Active Substance: GRANULOCYTE COLONY-STIMULATING FACTOR NOS
     Indication: Supportive care
     Route: 065

REACTIONS (3)
  - Small intestinal obstruction [Unknown]
  - Febrile neutropenia [Unknown]
  - Neutropenia [Unknown]
